FAERS Safety Report 9888848 (Version 4)
Quarter: 2014Q2

REPORT INFORMATION
  Report Type: Spontaneous
  Country: US (occurrence: US)
  Receive Date: 20140211
  Receipt Date: 20140401
  Transmission Date: 20141212
  Serious: Yes (Death, Hospitalization)
  Sender: FDA-Public Use
  Company Number: US-BAXTER-2014BAX005705

PATIENT
  Sex: Female
  Weight: 77.18 kg

DRUGS (5)
  1. DIANEAL LOW CALCIUM [Suspect]
     Indication: PERITONEAL DIALYSIS
     Route: 033
     Dates: start: 201111, end: 20140223
  2. DIANEAL PD2 [Suspect]
     Indication: PERITONEAL DIALYSIS
     Route: 033
     Dates: start: 20111116
  3. DIANEAL PD2 [Suspect]
     Dosage: 3 BAGS
     Route: 033
     Dates: start: 20111221, end: 20140223
  4. DIANEAL PD2 [Suspect]
     Indication: PERITONEAL DIALYSIS
     Route: 033
     Dates: start: 20111221, end: 20140223
  5. EXTRANEAL [Suspect]
     Indication: PERITONEAL DIALYSIS
     Dosage: 1 BAG
     Route: 033
     Dates: start: 20111130, end: 20140213

REACTIONS (5)
  - Gastrointestinal infection [Fatal]
  - Arrhythmia [Fatal]
  - Sepsis [Unknown]
  - Altered state of consciousness [Unknown]
  - Hypotension [Unknown]
